FAERS Safety Report 22911926 (Version 3)
Quarter: 2024Q1

REPORT INFORMATION
  Report Type: Report from Study
  Country: CA (occurrence: CA)
  Receive Date: 20230906
  Receipt Date: 20240328
  Transmission Date: 20240410
  Serious: Yes (Hospitalization, Other)
  Sender: FDA-Public Use
  Company Number: CA-UCBSA-2023016779

PATIENT
  Age: 47 Year
  Sex: Male

DRUGS (2)
  1. CERTOLIZUMAB PEGOL [Suspect]
     Active Substance: CERTOLIZUMAB PEGOL
     Indication: Ankylosing spondylitis
     Dosage: 400 MILLIGRAM, EV 2 WEEKS(QOW)
     Route: 058
     Dates: start: 20180301
  2. MESALAMINE [Concomitant]
     Active Substance: MESALAMINE
     Indication: Colitis ulcerative
     Dosage: 3.6 GRAM, ONCE DAILY (QD)

REACTIONS (8)
  - Nephrolithiasis [Unknown]
  - Oral herpes [Recovered/Resolved]
  - COVID-19 [Recovered/Resolved]
  - Abdominal discomfort [Unknown]
  - Faecal calprotectin abnormal [Recovered/Resolved]
  - Musculoskeletal discomfort [Recovered/Resolved]
  - Product dose omission issue [Unknown]
  - Product quality issue [Unknown]

NARRATIVE: CASE EVENT DATE: 20230519
